FAERS Safety Report 5223483-6 (Version None)
Quarter: 2007Q1

REPORT INFORMATION
  Report Type: 
  Country: None (occurrence: None)
  Receive Date: 20070125
  Receipt Date: 20070116
  Transmission Date: 20070707
  Serious: Yes (Other)
  Sender: FDA-Public Use
  Company Number: 235124

PATIENT
  Sex: Male
  Weight: 77.1 kg

DRUGS (4)
  1. RAPTIVA [Suspect]
     Indication: PSORIASIS
     Dosage: SEE IMAGE
     Route: 058
     Dates: start: 20060919, end: 20061101
  2. RAPTIVA [Suspect]
     Indication: PSORIASIS
     Dosage: SEE IMAGE
     Route: 058
     Dates: start: 20060916
  3. VITAMIN A (NATURAL) CAP [Concomitant]
  4. ASPIRIN [Concomitant]

REACTIONS (4)
  - CONDITION AGGRAVATED [None]
  - MUSCULOSKELETAL STIFFNESS [None]
  - PSORIASIS [None]
  - RHEUMATOID ARTHRITIS [None]
